FAERS Safety Report 5451880-2 (Version None)
Quarter: 2007Q3

REPORT INFORMATION
  Report Type: 
  Country: None (occurrence: None)
  Receive Date: 20070803
  Receipt Date: 20060905
  Transmission Date: 20080115
  Serious: Yes (Other)
  Sender: FDA-Public Use
  Company Number: 2006SP001311

PATIENT
  Age: 52 Year
  Sex: Male

DRUGS (1)
  1. INTRON A [Suspect]
     Indication: HEPATITIS C
     Dosage: TIW
     Dates: start: 19991001, end: 20010928

REACTIONS (5)
  - BLADDER DISORDER [None]
  - DEHYDRATION [None]
  - HEPATIC PAIN [None]
  - RENAL DISORDER [None]
  - SUICIDAL IDEATION [None]
